FAERS Safety Report 9167283 (Version 1)
Quarter: 2013Q1

REPORT INFORMATION
  Report Type: Spontaneous
  Country: US (occurrence: None)
  Receive Date: 20130305
  Receipt Date: 20130305
  Transmission Date: 20140127
  Serious: Yes (Other)
  Sender: FDA-Public Use
  Company Number: 2013-0489

PATIENT
  Age: 83 Year
  Sex: 0
  Weight: 53.9 kg

DRUGS (4)
  1. SOMATULINE [Suspect]
     Indication: CARCINOID SYNDROME
     Dosage: 120 MG (120 MG, 1 IN 4 WK), SUBCUTANEOUS
     Route: 058
     Dates: start: 20120501
  2. SYNTHROID (LEVOTHYROXINE SODIUM) [Concomitant]
  3. TEMODAR (TEMOZOLOMIDE) [Concomitant]
  4. XELODA (CAPECITABINE) [Concomitant]

REACTIONS (1)
  - Eczema [None]
